FAERS Safety Report 7623385-1 (Version None)
Quarter: 2011Q3

REPORT INFORMATION
  Report Type: 
  Country: None (occurrence: None)
  Receive Date: 20110720
  Receipt Date: 20110712
  Transmission Date: 20111222
  Serious: Yes (Other)
  Sender: FDA-Public Use
  Company Number: US-ROCHE-789727

PATIENT
  Age: 66 Year
  Sex: Male
  Weight: 71.4 kg

DRUGS (8)
  1. ABT-888 [Concomitant]
     Dates: start: 20080801
  2. DEPSIPEPTIDE [Concomitant]
     Dates: start: 20080101
  3. NELFINAVIR MESYLATE [Concomitant]
     Dates: start: 20070901
  4. TOPOTECAN [Concomitant]
     Dates: start: 20080801
  5. BEVACIZUMAB [Suspect]
     Dosage: CYCLE 2, FREQUENCY: OVER 30- 60 MINUTES ON DAYS 1 AND 15. LAST ADMINISTERED DATE: 10 MAY 2011.
     Route: 042
     Dates: start: 20110426
  6. BEVACIZUMAB [Suspect]
     Dosage: CYCLE 1: OVER 90 MINUTES ON DAY -7, AND OVER 60 MINUTES ON DAY;
     Route: 042
     Dates: start: 20110322
  7. EZN-2208 [Suspect]
     Dosage: CYCLE: 28 DAYS, FREQUENCY: OVER ONE HOUR ON DAY 1, 8 AND 15. LAST ADMINISTERED DATE: 10 MAY 2011.
     Route: 042
     Dates: start: 20110322
  8. SORAFENIB [Concomitant]

REACTIONS (1)
  - ACTIVATED PARTIAL THROMBOPLASTIN TIME PROLONGED [None]
